FAERS Safety Report 15709310 (Version 2)
Quarter: 2019Q2

REPORT INFORMATION
  Report Type: Spontaneous
  Country: US (occurrence: US)
  Receive Date: 20181211
  Receipt Date: 20190617
  Transmission Date: 20190711
  Serious: No
  Sender: FDA-Public Use
  Company Number: US-VERTEX PHARMACEUTICALS-2018-009219

PATIENT
  Sex: Female

DRUGS (2)
  1. KALYDECO [Suspect]
     Active Substance: IVACAFTOR
     Indication: CYSTIC FIBROSIS
     Dosage: 150 MG, BID
     Route: 048
     Dates: start: 20180814
  2. KALYDECO [Suspect]
     Active Substance: IVACAFTOR
     Dosage: 150 MG TABLETS (FREQUENCY UNSPECIFIED)
     Route: 048
     Dates: end: 20190422

REACTIONS (1)
  - Hepatic enzyme increased [Unknown]
